FAERS Safety Report 9324927 (Version 2)
Quarter: 2013Q2

REPORT INFORMATION
  Report Type: Other
  Country: DE (occurrence: DE)
  Receive Date: 20130603
  Receipt Date: 20130610
  Transmission Date: 20140414
  Serious: Yes (Hospitalization, Other)
  Sender: FDA-Public Use
  Company Number: DE-WATSON-2013-09489

PATIENT
  Sex: Male
  Weight: 3 kg

DRUGS (2)
  1. CITALOPRAM HYDROBROMIDE (UNKNOWN) [Suspect]
     Indication: DEPRESSION
     Dosage: 30 MG, DAILY
     Route: 064
     Dates: start: 20120124, end: 20121015
  2. INSULIN [Concomitant]
     Indication: GESTATIONAL DIABETES
     Route: 065

REACTIONS (3)
  - Neonatal respiratory distress syndrome [Recovered/Resolved]
  - Drug withdrawal syndrome neonatal [Recovered/Resolved]
  - Foetal exposure during pregnancy [Recovering/Resolving]
